FAERS Safety Report 7981653-8 (Version None)
Quarter: 2011Q4

REPORT INFORMATION
  Report Type: 
  Country: None (occurrence: None)
  Receive Date: 20111213
  Receipt Date: 20101124
  Transmission Date: 20120403
  Serious: No
  Sender: FDA-Public Use
  Company Number: USA/USA/10/0016759

PATIENT
  Sex: Male

DRUGS (1)
  1. PRAVASTATIN SODIUM [Suspect]
     Indication: PRODUCT USED FOR UNKNOWN INDICATION

REACTIONS (2)
  - NO THERAPEUTIC RESPONSE [None]
  - PRURITUS [None]
